FAERS Safety Report 5384944-2 (Version None)
Quarter: 2007Q3

REPORT INFORMATION
  Report Type: 
  Country: None (occurrence: None)
  Receive Date: 20070709
  Receipt Date: 20070627
  Transmission Date: 20080115
  Serious: Yes (Hospitalization)
  Sender: FDA-Public Use
  Company Number: 430055K07USA

PATIENT
  Age: 34 Year
  Sex: Female
  Weight: 76.2043 kg

DRUGS (7)
  1. NOVANTRONE [Suspect]
     Indication: MULTIPLE SCLEROSIS
     Dosage: SEE IMAGE
     Dates: start: 20060113, end: 20060113
  2. NOVANTRONE [Suspect]
     Indication: MULTIPLE SCLEROSIS
     Dosage: SEE IMAGE
     Dates: start: 20070613
  3. AVONEX [Suspect]
     Dates: end: 20070601
  4. NEURONTIN [Concomitant]
  5. BACLOFEN [Concomitant]
  6. ZYRTEC [Concomitant]
  7. ZOCOR [Concomitant]

REACTIONS (4)
  - CONDITION AGGRAVATED [None]
  - MULTIPLE SCLEROSIS [None]
  - PYREXIA [None]
  - WHITE BLOOD CELL COUNT DECREASED [None]
